FAERS Safety Report 8543832-0 (Version None)
Quarter: 2012Q3

REPORT INFORMATION
  Report Type: 
  Country: None (occurrence: None)
  Receive Date: 20120727
  Receipt Date: 20120720
  Transmission Date: 20120928
  Serious: Yes (Other)
  Sender: FDA-Public Use
  Company Number: FR-PFIZER INC-2012175562

PATIENT
  Age: 24 Year
  Sex: Female

DRUGS (1)
  1. NORDETTE-21 [Suspect]
     Dosage: 1 DF, SINGLE
     Route: 048
     Dates: start: 20111226, end: 20111226

REACTIONS (1)
  - SEBORRHOEIC DERMATITIS [None]
